FAERS Safety Report 18090856 (Version 2)
Quarter: 2021Q1

REPORT INFORMATION
  Report Type: Spontaneous
  Country: SK (occurrence: SK)
  Receive Date: 20200730
  Receipt Date: 20210130
  Transmission Date: 20210419
  Serious: Yes (Congenital Anomaly, Other)
  Sender: FDA-Public Use
  Company Number: SK-ACCORD-193350

PATIENT
  Sex: Male
  Weight: 1.15 kg

DRUGS (10)
  1. METHYLDOPA. [Suspect]
     Active Substance: METHYLDOPA
     Indication: PRODUCT USED FOR UNKNOWN INDICATION
     Dosage: 250 MG, 4X/DAY (1?1?1?1 TBL)
     Route: 064
  2. NADROPARIN [Suspect]
     Active Substance: NADROPARIN
     Indication: DIABETIC NEPHROPATHY
     Dosage: 0.4 ML, Q24H
     Route: 064
  3. ALBUMIN [Suspect]
     Active Substance: ALBUMIN HUMAN
     Indication: PRODUCT USED FOR UNKNOWN INDICATION
     Route: 064
  4. ALBUMIN [Suspect]
     Active Substance: ALBUMIN HUMAN
     Indication: DIABETIC NEPHROPATHY
     Route: 064
  5. METHYLDOPA. [Suspect]
     Active Substance: METHYLDOPA
     Indication: DIABETIC NEPHROPATHY
     Dosage: MATERNAL DOSE: 250 MG, TID
     Route: 064
  6. INSULIN [Suspect]
     Active Substance: INSULIN NOS
     Indication: DIABETIC NEPHROPATHY
     Dosage: 30,5 UNITS/BASAL DOSE, BOLUSES 3? 4?4 UNITS
     Route: 064
  7. FUROSEMIDE. [Suspect]
     Active Substance: FUROSEMIDE
     Indication: DIABETIC NEPHROPATHY
     Dosage: MATERNAL DOSE: 10 MG, BID
     Route: 064
  8. MAGNESIUM LACTATE [Suspect]
     Active Substance: MAGNESIUM LACTATE
     Indication: DIABETIC NEPHROPATHY
     Dosage: 500 MG, TID
     Route: 064
  9. ERYTHROPOIETIN HUMAN [Suspect]
     Active Substance: ERYTHROPOIETIN
     Indication: RESPIRATORY TRACT INFECTION
     Dosage: MATERNAL DOSE: 2000 IU, QW
     Route: 064
  10. AMLODIPINE [Suspect]
     Active Substance: AMLODIPINE BESYLATE
     Indication: DIABETIC NEPHROPATHY
     Dosage: MATERNAL DOSE: 5 MG, QD
     Route: 064

REACTIONS (8)
  - Hypophosphataemia [Unknown]
  - Bronchopulmonary dysplasia [Unknown]
  - Atrial septal defect [Unknown]
  - Neonatal hypocalcaemia [Unknown]
  - Premature baby [Unknown]
  - Umbilical hernia [Unknown]
  - Foetal exposure during pregnancy [Unknown]
  - Neonatal respiratory distress syndrome [Unknown]
